FAERS Safety Report 7122316-0 (Version None)
Quarter: 2010Q4

REPORT INFORMATION
  Report Type: 
  Country: None (occurrence: None)
  Receive Date: 20101112
  Receipt Date: 20101108
  Transmission Date: 20110411
  Serious: Yes (Congenital Anomaly)
  Sender: FDA-Public Use
  Company Number: 2010MA004393

PATIENT
  Sex: Male
  Weight: 3.94 kg

DRUGS (4)
  1. PROMETHAZINE HCL [Suspect]
     Indication: DRUG EXPOSURE DURING PREGNANCY
     Dosage: 10 MG;TRPL
     Route: 064
     Dates: start: 20100406
  2. PROMETHAZINE HCL [Suspect]
     Indication: DRUG EXPOSURE DURING PREGNANCY
     Dosage: 25 MG;TID;TRPL
     Route: 064
     Dates: start: 20100407, end: 20100804
  3. CYCLIZINE [Concomitant]
  4. PREV MEDS [Concomitant]

REACTIONS (3)
  - ANKYLOGLOSSIA CONGENITAL [None]
  - CAESAREAN SECTION [None]
  - MATERNAL DRUGS AFFECTING FOETUS [None]
